FAERS Safety Report 23124847 (Version 3)
Quarter: 2023Q4

REPORT INFORMATION
  Report Type: Report from Study
  Country: PL (occurrence: PL)
  Receive Date: 20231030
  Receipt Date: 20231108
  Transmission Date: 20240110
  Serious: Yes (Death)
  Sender: FDA-Public Use
  Company Number: PL-EXELIXIS-XL18423069859

PATIENT

DRUGS (21)
  1. CABOZANTINIB [Suspect]
     Active Substance: CABOZANTINIB
     Indication: Metastatic renal cell carcinoma
     Dosage: 60 MILLIGRAM, QD
     Route: 048
     Dates: start: 20210528
  2. ATEZOLIZUMAB [Suspect]
     Active Substance: ATEZOLIZUMAB
     Indication: Metastatic renal cell carcinoma
     Dosage: 1200 MILLIGRAM, Q3WEEKS
     Route: 041
     Dates: start: 20210528
  3. LEVOTHYROXINE SODIUM [Concomitant]
     Active Substance: LEVOTHYROXINE SODIUM
     Dosage: 125 UG, QD
     Route: 048
     Dates: start: 2003
  4. PERINDOPRIL [Concomitant]
     Active Substance: PERINDOPRIL
     Dosage: 5 MG, QD
     Route: 048
     Dates: start: 2003
  5. DIURED [Concomitant]
     Dosage: 5 MG, QD
     Route: 048
     Dates: start: 2003
  6. NEBIVOLOL [Concomitant]
     Active Substance: NEBIVOLOL
     Dosage: 5 MG, QD
     Route: 048
     Dates: start: 2003
  7. AVAMINA [Concomitant]
     Dosage: 500 MG, QD
     Route: 048
     Dates: start: 202007
  8. ALLOPURINOL [Concomitant]
     Active Substance: ALLOPURINOL
     Dosage: 100 MG, QD
     Route: 048
     Dates: start: 2019
  9. FENOFIBRATE [Concomitant]
     Active Substance: FENOFIBRATE
     Dosage: 215 MG, QD
     Route: 048
     Dates: start: 2018
  10. AMLODIPINE BESYLATE [Concomitant]
     Active Substance: AMLODIPINE BESYLATE
     Dosage: 5 MG, QD
     Route: 048
     Dates: start: 2003
  11. SPIRONOLACTONE [Concomitant]
     Active Substance: SPIRONOLACTONE
     Dosage: 25 MG, QD
     Route: 048
     Dates: start: 2015
  12. D3 VITAMIN [Concomitant]
     Dosage: 2000 U, QD
     Route: 048
     Dates: start: 20210427
  13. Prazol [Concomitant]
     Dosage: 20 MG, QD
     Route: 048
     Dates: start: 20211001
  14. ASCORBIC ACID\RUTIN [Concomitant]
     Active Substance: ASCORBIC ACID\RUTIN
     Dosage: 1 CAPSULE, TID
     Route: 048
     Dates: start: 20210723
  15. ACETAMINOPHEN\TRAMADOL HYDROCHLORIDE [Concomitant]
     Active Substance: ACETAMINOPHEN\TRAMADOL HYDROCHLORIDE
     Dosage: 325 MG, BID
     Route: 048
     Dates: start: 20220617
  16. ASPARTIC ACID [Concomitant]
     Active Substance: ASPARTIC ACID
     Indication: Pain in extremity
     Dosage: 2 CAPSULE, TID
     Route: 048
  17. 4FLEX [Concomitant]
     Dosage: 1 OTHER (1 IN 1 AS REQUIRED)
     Route: 062
     Dates: start: 20220617
  18. HEPATIL [Concomitant]
     Indication: Alanine aminotransferase increased
     Dosage: 1 CAPSULE, TID
     Route: 048
     Dates: start: 20221104
  19. HEPATIL [Concomitant]
     Indication: Aspartate aminotransferase increased
  20. Trifas [Concomitant]
     Indication: Aspiration pleural cavity
     Dosage: 10 MG, QD
     Route: 048
     Dates: start: 20230922, end: 20230926
  21. POTASSIUM CHLORIDE [Concomitant]
     Active Substance: POTASSIUM CHLORIDE
     Indication: Aspiration pleural cavity
     Dosage: 2 CAPSULES, QD
     Route: 048
     Dates: start: 20230922, end: 20230926

REACTIONS (1)
  - Malignant pleural effusion [Fatal]

NARRATIVE: CASE EVENT DATE: 20230404
